FAERS Safety Report 13382047 (Version 1)
Quarter: 2017Q1

REPORT INFORMATION
  Report Type: Spontaneous
  Country: US (occurrence: US)
  Receive Date: 20170329
  Receipt Date: 20170329
  Transmission Date: 20170429
  Serious: Yes (Death)
  Sender: FDA-Public Use
  Company Number: CA-ALLERGAN-1706104US

PATIENT
  Age: 56 Year
  Sex: Male

DRUGS (1)
  1. AQUADEKS CHEWABLE TABLETS [Suspect]
     Active Substance: VITAMINS
     Indication: PRODUCT USED FOR UNKNOWN INDICATION
     Dosage: 1 DF, BID
     Route: 048
     Dates: start: 20100819, end: 20110119

REACTIONS (1)
  - Death [Fatal]
